FAERS Safety Report 9985405 (Version 2)
Quarter: 2014Q2

REPORT INFORMATION
  Report Type: Spontaneous
  Country: ZA (occurrence: ZA)
  Receive Date: 20140307
  Receipt Date: 20140403
  Transmission Date: 20141212
  Serious: Yes (Hospitalization, Other)
  Sender: FDA-Public Use
  Company Number: ZA-ABBVIE-14P-143-1207149-00

PATIENT
  Age: 73 Year
  Sex: Male
  Weight: 95.2 kg

DRUGS (13)
  1. HUMIRA [Suspect]
     Indication: CROHN^S DISEASE
     Route: 058
     Dates: start: 20090921, end: 201312
  2. HUMIRA [Suspect]
     Route: 058
     Dates: start: 20090921
  3. TREPILINE (AMITRIPTYLINE) [Concomitant]
     Indication: INSOMNIA
  4. LEVIMIR [Concomitant]
     Indication: TYPE 1 DIABETES MELLITUS
     Route: 058
  5. TAMSUL [Concomitant]
     Indication: PROSTATOMEGALY
     Route: 048
  6. FORTZAAR [Concomitant]
     Indication: ESSENTIAL HYPERTENSION
     Dosage: 100MG/25MG
     Route: 048
  7. FORVENT [Concomitant]
     Indication: CHRONIC OBSTRUCTIVE PULMONARY DISEASE
     Route: 055
  8. FOXAIR [Concomitant]
     Indication: CHRONIC OBSTRUCTIVE PULMONARY DISEASE
     Dosage: 50/250 ACC. 1 PUFF TWICE DAILY
     Route: 055
  9. ECOTRIN [Concomitant]
     Indication: CARDIAC FAILURE
     Route: 048
  10. LOMANOR [Concomitant]
     Indication: ESSENTIAL HYPERTENSION
     Route: 048
  11. ASPAVOR [Concomitant]
     Indication: LIPID METABOLISM DISORDER
     Dosage: AT NIGHT
     Route: 048
  12. HEXARONE [Concomitant]
     Indication: CARDIAC FLUTTER
     Route: 048
  13. UNAT [Concomitant]
     Indication: ESSENTIAL HYPERTENSION
     Route: 048

REACTIONS (12)
  - Emphysema [Unknown]
  - Coronary artery bypass [Unknown]
  - Endoscopy [Unknown]
  - Pneumonia [Unknown]
  - Dyspnoea [Unknown]
  - Acute myocardial infarction [Unknown]
  - Subclavian artery stenosis [Unknown]
  - Diabetes mellitus inadequate control [Recovering/Resolving]
  - Cough [Unknown]
  - Renal failure chronic [Recovering/Resolving]
  - Orthostatic hypotension [Unknown]
  - Arteriosclerosis [Unknown]
